FAERS Safety Report 9557067 (Version 2)
Quarter: 2013Q3

REPORT INFORMATION
  Report Type: Spontaneous
  Country: FR (occurrence: FR)
  Receive Date: 20130926
  Receipt Date: 20130926
  Transmission Date: 20140515
  Serious: Yes (Hospitalization)
  Sender: FDA-Public Use
  Company Number: PHHY2010FR57682

PATIENT
  Age: 81 Year
  Sex: Female
  Weight: 60 kg

DRUGS (7)
  1. ACLASTA [Suspect]
     Indication: OSTEOPOROSIS
     Dosage: 5 MG, UNK
     Route: 042
     Dates: start: 20100731
  2. CORTANCYL [Concomitant]
     Indication: TEMPORAL ARTERITIS
     Dosage: 18 MG, DAILY
     Dates: start: 201004
  3. MOPRAL [Concomitant]
     Dosage: 20 MG,DAILY
     Route: 048
  4. ALDOMET [Concomitant]
     Indication: HYPERTENSION
     Dosage: 250 MG,DAILY
     Route: 048
  5. ALDALIX [Concomitant]
     Indication: HYPERTENSION
     Dosage: 50 MG,DAILY
     Route: 048
  6. DIFFU K [Concomitant]
     Indication: HYPOKALAEMIA
     Dosage: 1 DF, QD
     Route: 048
  7. TRAVATAN [Concomitant]
     Indication: GLAUCOMA
     Dosage: 1 DRP,DAILY

REACTIONS (1)
  - Skin mass [Recovered/Resolved]
